FAERS Safety Report 5765715-1 (Version None)
Quarter: 2008Q2

REPORT INFORMATION
  Report Type: 
  Country: None (occurrence: None)
  Receive Date: 20080611
  Receipt Date: 20080603
  Transmission Date: 20081010
  Serious: Yes (Hospitalization)
  Sender: FDA-Public Use
  Company Number: PHHY2008GB10172

PATIENT
  Sex: Female

DRUGS (1)
  1. TEGRETOL [Suspect]
     Route: 048

REACTIONS (2)
  - DEREALISATION [None]
  - FATIGUE [None]
